FAERS Safety Report 18537989 (Version 1)
Quarter: 2020Q4

REPORT INFORMATION
  Report Type: Spontaneous
  Country: FR (occurrence: FR)
  Receive Date: 20201123
  Receipt Date: 20201123
  Transmission Date: 20210114
  Serious: Yes (Other)
  Sender: FDA-Public Use
  Company Number: FR-US-PROVELL PHARMACEUTICALS LLC-8204325

PATIENT
  Age: 64 Year
  Sex: Female

DRUGS (3)
  1. LEVOTHYROX [Suspect]
     Active Substance: LEVOTHYROXINE
  2. LEVOTHYROX [Suspect]
     Active Substance: LEVOTHYROXINE
  3. LEVOTHYROX [Suspect]
     Active Substance: LEVOTHYROXINE
     Indication: PRODUCT USED FOR UNKNOWN INDICATION

REACTIONS (3)
  - Hyperthyroidism [Recovering/Resolving]
  - Feeling abnormal [Recovering/Resolving]
  - Hypothyroidism [Recovering/Resolving]

NARRATIVE: CASE EVENT DATE: 201710
